FAERS Safety Report 23081030 (Version 2)
Quarter: 2023Q4

REPORT INFORMATION
  Report Type: Spontaneous
  Country: CH (occurrence: CH)
  Receive Date: 20231018
  Receipt Date: 20231026
  Transmission Date: 20240110
  Serious: Yes (Hospitalization)
  Sender: FDA-Public Use
  Company Number: CH-AMERICAN REGENT INC-2023002334

PATIENT
  Age: 50 Year
  Sex: Male
  Weight: 78 kg

DRUGS (7)
  1. FERINJECT [Suspect]
     Active Substance: FERRIC CARBOXYMALTOSE
     Indication: Iron deficiency
     Dosage: 1000 MILLIGRAM, DILUTED IN 100 ML NACL SOLUTION. ADMINISTRATION SITE: ELBOW BEND. (1000 MG)
     Dates: start: 20200604, end: 20200604
  2. ERYTHROMYCIN [Concomitant]
     Active Substance: ERYTHROMYCIN
     Indication: Product used for unknown indication
     Dosage: UNK, SINGLE
     Route: 065
     Dates: start: 20200602, end: 20200602
  3. UNSPECIFIED INGREDIENT [Concomitant]
     Active Substance: UNSPECIFIED INGREDIENT
     Indication: Product used for unknown indication
     Dosage: UNK
     Route: 042
     Dates: start: 20200602
  4. VITARUBIN [CYANOCOBALAMIN] [Concomitant]
     Indication: Vitamin B12 deficiency
     Dosage: 1 GRAM, SINGLE
     Route: 030
     Dates: start: 20200604, end: 20200604
  5. FOLIC ACID [Concomitant]
     Active Substance: FOLIC ACID
     Indication: Folate deficiency
     Dosage: UNK
     Route: 065
     Dates: start: 20200604
  6. NEXIUM [Concomitant]
     Active Substance: ESOMEPRAZOLE MAGNESIUM
     Indication: Product used for unknown indication
     Dosage: 80 MILLIGRAM, BID (40 MG, 2 IN 1 D)
     Route: 048
  7. SODIUM PHOSPHATE, MONOBASIC, ANHYDROUS [Concomitant]
     Active Substance: SODIUM PHOSPHATE, MONOBASIC, ANHYDROUS
     Indication: Product used for unknown indication
     Dosage: 500 MILLIGRAM, SINGLE DOSE AT 1800
     Route: 065
     Dates: start: 20200604, end: 20200604

REACTIONS (8)
  - Craniocerebral injury [Recovered/Resolved]
  - Face injury [Recovered/Resolved]
  - Malaise [Recovered/Resolved]
  - Off label use [Unknown]
  - Presyncope [Recovered/Resolved]
  - Abdominal pain [Recovered/Resolved]
  - Diarrhoea [Recovered/Resolved]
  - Vertigo [Recovered/Resolved]

NARRATIVE: CASE EVENT DATE: 20200604
